FAERS Safety Report 13701895 (Version 1)
Quarter: 2017Q2

REPORT INFORMATION
  Report Type: Report from Study
  Country: US (occurrence: US)
  Receive Date: 20170629
  Receipt Date: 20170629
  Transmission Date: 20170830
  Serious: No
  Sender: FDA-Public Use
  Company Number: US-IPSEN BIOPHARMACEUTICALS, INC.-2015-3110

PATIENT
  Sex: Male

DRUGS (4)
  1. NUTROPIN AQ [Suspect]
     Active Substance: SOMATROPIN
     Indication: GROWTH FAILURE
     Dosage: NOT REPORTED
     Route: 058
     Dates: start: 20060823
  2. NUTROPIN AQ [Suspect]
     Active Substance: SOMATROPIN
     Indication: SMALL FOR DATES BABY
     Dosage: 0.62 MG/KG/WEEK
     Route: 058
     Dates: start: 200609
  3. NUTROPIN AQ [Suspect]
     Active Substance: SOMATROPIN
     Indication: PRODUCT USE IN UNAPPROVED INDICATION
     Route: 058
     Dates: start: 20060923
  4. INCRELEX [Suspect]
     Active Substance: MECASERMIN
     Indication: GROWTH FAILURE
     Route: 058
     Dates: start: 200906, end: 201210

REACTIONS (9)
  - Influenza [Unknown]
  - Depression [Unknown]
  - Mood swings [Unknown]
  - Depressed mood [Unknown]
  - Treatment failure [Unknown]
  - Feeling jittery [Unknown]
  - Aggression [Unknown]
  - Suicidal ideation [Unknown]
  - Therapeutic response decreased [Unknown]
